FAERS Safety Report 4491623-2 (Version None)
Quarter: 2004Q4

REPORT INFORMATION
  Report Type: 
  Country: None (occurrence: None)
  Receive Date: 20041029
  Receipt Date: 20041027
  Transmission Date: 20050328
  Serious: Yes (Death)
  Sender: FDA-Public Use
  Company Number: S04-USA-06118-01

PATIENT
  Age: 31 Year
  Sex: Male
  Weight: 104.3273 kg

DRUGS (10)
  1. LEXAPRO [Suspect]
     Indication: DEPRESSION
     Dosage: 30 MG QD PO
     Route: 048
     Dates: start: 20031113, end: 20040621
  2. CLOZAPINE [Suspect]
     Indication: SCHIZOPHRENIA
     Dosage: 300 MG
     Dates: start: 20040101, end: 20040621
  3. VICODIN [Concomitant]
  4. TOPAMAX [Concomitant]
  5. DEPAKOTE [Concomitant]
  6. LOPID [Concomitant]
  7. INDERAL [Concomitant]
  8. DOXEPIN HCL [Concomitant]
  9. FLEXERIL [Concomitant]
  10. PROMETHAZINE [Concomitant]

REACTIONS (4)
  - DRUG TOXICITY [None]
  - MEDICATION ERROR [None]
  - OVERDOSE [None]
  - SELF-MEDICATION [None]
